FAERS Safety Report 7418082-1 (Version None)
Quarter: 2011Q2

REPORT INFORMATION
  Report Type: 
  Country: None (occurrence: None)
  Receive Date: 20110415
  Receipt Date: 20110412
  Transmission Date: 20111010
  Serious: Yes (Other)
  Sender: FDA-Public Use
  Company Number: US-ROXANE LABORATORIES, INC.-2011-RO-00503RO

PATIENT
  Age: 54 Year
  Sex: Male

DRUGS (2)
  1. LITHIUM CARBONATE [Suspect]
     Dosage: 600 MG
  2. ARIPIPRAZOLE [Suspect]
     Dosage: 15 MG

REACTIONS (1)
  - PARKINSONISM [None]
